FAERS Safety Report 24572045 (Version 1)
Quarter: 2024Q4

REPORT INFORMATION
  Report Type: Spontaneous
  Country: US (occurrence: None)
  Receive Date: 20241029
  Receipt Date: 20241029
  Transmission Date: 20250114
  Serious: Yes (unspecified)
  Sender: Public
  Company Number: None

PATIENT
  Age: 72 Year
  Sex: Male

DRUGS (10)
  1. NOVOLOG [Suspect]
     Active Substance: INSULIN ASPART
  2. AMLODIPINE [Concomitant]
  3. vendafalxine [Concomitant]
  4. nova log insulin [Concomitant]
  5. GEMTESA [Concomitant]
     Active Substance: VIBEGRON
  6. LISINOPRIL [Concomitant]
     Active Substance: LISINOPRIL
  7. OMEPRAZOLE [Concomitant]
     Active Substance: OMEPRAZOLE
  8. MULTI VITAMIN [Concomitant]
  9. VIT C IRON [Concomitant]
  10. VIT DKRILL OIL [Concomitant]

REACTIONS (1)
  - Device malfunction [None]

NARRATIVE: CASE EVENT DATE: 20241029
